FAERS Safety Report 5268164-8 (Version None)
Quarter: 2007Q1

REPORT INFORMATION
  Report Type: 
  Country: None (occurrence: None)
  Receive Date: 20061213
  Receipt Date: 20050802
  Transmission Date: 20070707
  Serious: No
  Sender: FDA-Public Use
  Company Number: 2005UW11364

PATIENT
  Age: 59 Year
  Sex: Female
  Weight: 61.234 kg

DRUGS (2)
  1. IRESSA [Suspect]
  2. SYNTHROID [Concomitant]

REACTIONS (1)
  - DISEASE PROGRESSION [None]
